FAERS Safety Report 19354178 (Version 1)
Quarter: 2021Q2

REPORT INFORMATION
  Report Type: Spontaneous
  Country: US (occurrence: US)
  Receive Date: 20210531
  Receipt Date: 20210531
  Transmission Date: 20210717
  Serious: No
  Sender: FDA-Public Use
  Company Number: NVSC2021US115149

PATIENT
  Sex: Female
  Weight: 70.75 kg

DRUGS (3)
  1. COMBIPATCH [Suspect]
     Active Substance: ESTRADIOL\NORETHINDRONE ACETATE
     Dosage: UNK
     Route: 062
     Dates: start: 20210323
  2. COMBIPATCH [Suspect]
     Active Substance: ESTRADIOL\NORETHINDRONE ACETATE
     Dosage: UNK
     Route: 062
     Dates: start: 202105
  3. COMBIPATCH [Suspect]
     Active Substance: ESTRADIOL\NORETHINDRONE ACETATE
     Indication: MENOPAUSE
     Dosage: UNK (STARTED ABOUT 8?9 YEARS PRIOR)
     Route: 062

REACTIONS (4)
  - Application site pain [Not Recovered/Not Resolved]
  - Device issue [Not Recovered/Not Resolved]
  - Product administered at inappropriate site [Not Recovered/Not Resolved]
  - Application site erythema [Not Recovered/Not Resolved]
